FAERS Safety Report 6243889-6 (Version None)
Quarter: 2009Q2

REPORT INFORMATION
  Report Type: 
  Country: None (occurrence: None)
  Receive Date: 20090623
  Receipt Date: 20090609
  Transmission Date: 20091009
  Serious: Yes (Hospitalization)
  Sender: FDA-Public Use
  Company Number: US-JNJFOC-20090603619

PATIENT
  Age: 66 Year
  Sex: Female

DRUGS (1)
  1. DACOGEN [Suspect]
     Indication: MYELODYSPLASTIC SYNDROME
     Dosage: CYCLES 1-13 ; CYCLE 14
     Dates: start: 20080101

REACTIONS (2)
  - PULMONARY FIBROSIS [None]
  - RESPIRATORY DISTRESS [None]
